FAERS Safety Report 5713994-9 (Version None)
Quarter: 2008Q2

REPORT INFORMATION
  Report Type: 
  Country: None (occurrence: None)
  Receive Date: 20080421
  Receipt Date: 20080407
  Transmission Date: 20081010
  Serious: Yes (Hospitalization)
  Sender: FDA-Public Use
  Company Number: 77681

PATIENT
  Age: 84 Year
  Sex: Female

DRUGS (4)
  1. ACETAMINOPHEN [Suspect]
     Indication: MUSCULOSKELETAL PAIN
     Dosage: 4G / QD / ORAL
     Route: 048
  2. OLANZAPINE [Concomitant]
  3. ASPIRIN [Concomitant]
  4. METOPROLOL TARTRATE [Concomitant]

REACTIONS (9)
  - ALANINE AMINOTRANSFERASE INCREASED [None]
  - ANOREXIA [None]
  - ASPARTATE AMINOTRANSFERASE INCREASED [None]
  - COAGULATION FACTOR V LEVEL DECREASED [None]
  - INTERNATIONAL NORMALISED RATIO INCREASED [None]
  - LIVER DISORDER [None]
  - METABOLIC ACIDOSIS [None]
  - NAUSEA [None]
  - SOMNOLENCE [None]
